FAERS Safety Report 16113988 (Version 1)
Quarter: 2019Q1

REPORT INFORMATION
  Report Type: Spontaneous
  Country: US (occurrence: US)
  Receive Date: 20190325
  Receipt Date: 20190325
  Transmission Date: 20190418
  Serious: No
  Sender: FDA-Public Use
  Company Number: US-ALLERGAN-1826987US

PATIENT
  Age: 39 Year
  Sex: Female
  Weight: 76.19 kg

DRUGS (6)
  1. SOOTHE XP [Concomitant]
     Active Substance: LIGHT MINERAL OIL\MINERAL OIL
     Indication: DRY EYE
     Dosage: UNK
     Route: 047
  2. LATISSE [Suspect]
     Active Substance: BIMATOPROST
     Indication: GROWTH OF EYELASHES
     Dosage: 1 GTT, QD
     Route: 061
     Dates: start: 20180313
  3. BUSPIRONE [Concomitant]
     Active Substance: BUSPIRONE HYDROCHLORIDE
     Indication: ANXIETY
     Dosage: 30 MG, QD
     Route: 048
  4. ARMOUR THYROID [Concomitant]
     Active Substance: THYROID, PORCINE
     Indication: HYPOTHYROIDISM
     Dosage: 60 MG, QD
     Route: 048
  5. KETOTIFEN [Concomitant]
     Active Substance: KETOTIFEN
     Indication: HYPERSENSITIVITY
     Dosage: UNK UNK, QD
     Route: 047
  6. NABUMETONE. [Concomitant]
     Active Substance: NABUMETONE
     Indication: PAIN
     Dosage: 750 MG, BID

REACTIONS (2)
  - Product dose omission [Unknown]
  - Madarosis [Not Recovered/Not Resolved]

NARRATIVE: CASE EVENT DATE: 201803
